FAERS Safety Report 17095781 (Version 2)
Quarter: 2019Q4

REPORT INFORMATION
  Report Type: Spontaneous
  Country: FR (occurrence: FR)
  Receive Date: 20191201
  Receipt Date: 20191204
  Transmission Date: 20200122
  Serious: Yes (Hospitalization)
  Sender: FDA-Public Use
  Company Number: FR-PFIZER INC-2019516025

PATIENT
  Sex: Male

DRUGS (26)
  1. COTRIMOXAZOLE [Suspect]
     Active Substance: SULFAMETHOXAZOLE\TRIMETHOPRIM
     Indication: INFECTION PROPHYLAXIS
     Dosage: 3 DF, WEEKLY
     Route: 048
     Dates: start: 20190930, end: 20191026
  2. GLICLAZIDE [Suspect]
     Active Substance: GLICLAZIDE
     Dosage: 1 DF, DAILY
     Route: 048
     Dates: end: 20191026
  3. VELMETIA [Suspect]
     Active Substance: METFORMIN\SITAGLIPTIN
     Dosage: 2 DF, QD, (50MG/1000MG)
     Route: 048
  4. PELMEG [Suspect]
     Active Substance: PEGFILGRASTIM
     Indication: NEUTROPENIA
     Dosage: 1 DF, EVERY MORNING
     Route: 058
     Dates: start: 20191007, end: 20191007
  5. LASILIX [FUROSEMIDE] [Concomitant]
     Active Substance: FUROSEMIDE
     Dosage: DOSE TEXT: 40 MG, PM / DOSE: 40 MG QAM / DOSE TEXT: 20 MG, AM
     Dates: start: 20191028
  6. LASILIX [FUROSEMIDE] [Concomitant]
     Active Substance: FUROSEMIDE
     Dosage: 20 MG, AM
     Dates: start: 20191031
  7. TAZOCILLINE [Suspect]
     Active Substance: PIPERACILLIN SODIUM\TAZOBACTAM SODIUM
     Indication: FEBRILE BONE MARROW APLASIA
     Dosage: 1 DF, TOTAL, (4G/0.5G)
     Route: 042
     Dates: start: 20191008, end: 20191008
  8. MACROGOL 4000 [Suspect]
     Active Substance: POLYETHYLENE GLYCOL 4000
     Dosage: 1 DF, AS NEEDED
     Route: 048
  9. BEPANTHEN [DEXPANTHENOL;DOMIPHEN BROMIDE] [Concomitant]
     Indication: SKIN EXFOLIATION
     Dosage: UNK
     Dates: start: 20191031
  10. ESOMEPRAZOLE. [Suspect]
     Active Substance: ESOMEPRAZOLE MAGNESIUM
     Dosage: 1 DF, DAILY
     Route: 048
  11. POLARAMINE [Concomitant]
     Active Substance: DEXCHLORPHENIRAMINE MALEATE
     Dosage: 1 DF, QD
     Dates: start: 20191029
  12. PENTACARINAT [Concomitant]
     Active Substance: PENTAMIDINE ISETHIONATE
     Dosage: UNK
  13. CIPROFLOXACIN. [Suspect]
     Active Substance: CIPROFLOXACIN
     Indication: FEBRILE BONE MARROW APLASIA
     Dosage: 2 DF, DAILY
     Route: 048
     Dates: start: 20191011, end: 20191018
  14. FLUVASTATIN [Suspect]
     Active Substance: FLUVASTATIN SODIUM
     Dosage: 1 DF, DAILY
     Route: 048
  15. LITAK [Suspect]
     Active Substance: CLADRIBINE
     Indication: HAIRY CELL LEUKAEMIA
     Dosage: 11.6 MG, DAILY
     Route: 058
     Dates: start: 20190930, end: 20191004
  16. BINOCRIT [Suspect]
     Active Substance: ERYTHROPOIETIN
     Indication: ANAEMIA
     Dosage: 2 DF, TOTAL
     Dates: start: 20191014, end: 20191021
  17. LASILIX [FUROSEMIDE] [Concomitant]
     Active Substance: FUROSEMIDE
     Dosage: 40 MG, PM
     Dates: start: 20191028
  18. ERYTHROPOIETIN [Suspect]
     Active Substance: ERYTHROPOIETIN
     Dosage: UNK
  19. ZARZIO [Suspect]
     Active Substance: FILGRASTIM
     Indication: NEUTROPENIA
     Dosage: 1 DF, DAILY
     Route: 058
     Dates: start: 20191015, end: 20191020
  20. RAMIPRIL. [Suspect]
     Active Substance: RAMIPRIL
     Dosage: 1 DF, DAILY
     Route: 048
  21. VALACICLOVIR [Suspect]
     Active Substance: VALACYCLOVIR HYDROCHLORIDE
     Indication: INFECTION PROPHYLAXIS
     Dosage: 2 DF, DAILY
     Route: 048
     Dates: start: 20191009, end: 20191026
  22. ACETYLSALICYLATE LYSINE [Suspect]
     Active Substance: ASPIRIN DL-LYSINE
     Dosage: 1 DF, DAILY
     Route: 048
  23. FOLINORAL [Suspect]
     Active Substance: LEUCOVORIN CALCIUM
     Dosage: 1 DF, WEEKLY
     Route: 048
     Dates: start: 20190930, end: 20191026
  24. CEFTRIAXONE. [Suspect]
     Active Substance: CEFTRIAXONE
     Indication: ANTIBIOTIC THERAPY
     Dosage: 1 DF, DAILY
     Route: 042
     Dates: start: 20191008, end: 20191009
  25. ATARAX [Concomitant]
     Active Substance: HYDROXYZINE HYDROCHLORIDE
     Dosage: 1 TABLET, PM
     Dates: start: 20191029
  26. LASILIX [FUROSEMIDE] [Concomitant]
     Active Substance: FUROSEMIDE
     Dosage: 40 MG, DAILY (IN THE MORNINGS)
     Dates: start: 20191029

REACTIONS (6)
  - Generalised oedema [Unknown]
  - Dysuria [Unknown]
  - Face oedema [Unknown]
  - Rash [Not Recovered/Not Resolved]
  - Pruritus [Recovered/Resolved]
  - Febrile bone marrow aplasia [Recovered/Resolved]

NARRATIVE: CASE EVENT DATE: 201910
